FAERS Safety Report 25735360 (Version 1)
Quarter: 2025Q3

REPORT INFORMATION
  Report Type: Spontaneous
  Country: EU (occurrence: EU)
  Receive Date: 20250828
  Receipt Date: 20250828
  Transmission Date: 20251021
  Serious: Yes (Hospitalization, Other)
  Sender: MYLAN
  Company Number: None

PATIENT
  Age: 33 Year
  Sex: Male

DRUGS (16)
  1. PREGABALIN [Suspect]
     Active Substance: PREGABALIN
     Indication: Product used for unknown indication
     Dosage: 300 MILLIGRAM, QID, 300 MG X4/DAY
     Dates: start: 2015
  2. PREGABALIN [Suspect]
     Active Substance: PREGABALIN
     Dosage: 300 MILLIGRAM, QID, 300 MG X4/DAY
     Route: 048
     Dates: start: 2015
  3. PREGABALIN [Suspect]
     Active Substance: PREGABALIN
     Dosage: 300 MILLIGRAM, QID, 300 MG X4/DAY
     Route: 048
     Dates: start: 2015
  4. PREGABALIN [Suspect]
     Active Substance: PREGABALIN
     Dosage: 300 MILLIGRAM, QID, 300 MG X4/DAY
     Dates: start: 2015
  5. COCAINE [Suspect]
     Active Substance: COCAINE
     Indication: Product used for unknown indication
  6. COCAINE [Suspect]
     Active Substance: COCAINE
     Route: 055
  7. COCAINE [Suspect]
     Active Substance: COCAINE
     Route: 055
  8. COCAINE [Suspect]
     Active Substance: COCAINE
  9. COCAINE [Suspect]
     Active Substance: COCAINE
     Indication: Product used for unknown indication
  10. COCAINE [Suspect]
     Active Substance: COCAINE
     Route: 045
  11. COCAINE [Suspect]
     Active Substance: COCAINE
     Route: 045
  12. COCAINE [Suspect]
     Active Substance: COCAINE
  13. ALCOHOL [Suspect]
     Active Substance: ALCOHOL
     Indication: Product used for unknown indication
  14. ALCOHOL [Suspect]
     Active Substance: ALCOHOL
     Route: 048
  15. ALCOHOL [Suspect]
     Active Substance: ALCOHOL
     Route: 048
  16. ALCOHOL [Suspect]
     Active Substance: ALCOHOL

REACTIONS (2)
  - Substance use disorder [Not Recovered/Not Resolved]
  - Drug use disorder [Not Recovered/Not Resolved]
